FAERS Safety Report 19207731 (Version 3)
Quarter: 2022Q2

REPORT INFORMATION
  Report Type: Spontaneous
  Country: US (occurrence: US)
  Receive Date: 20210503
  Receipt Date: 20220405
  Transmission Date: 20220720
  Serious: No
  Sender: FDA-Public Use
  Company Number: US-PFIZER INC-2021449546

PATIENT
  Age: 51 Year
  Sex: Female

DRUGS (1)
  1. IBRANCE [Suspect]
     Active Substance: PALBOCICLIB
     Indication: Breast cancer female
     Dosage: 100 MG, CYCLIC (DAILY 21/28 DAYS)
     Route: 048
     Dates: start: 20210324

REACTIONS (4)
  - Dry skin [Not Recovered/Not Resolved]
  - Fatigue [Unknown]
  - White blood cell count decreased [Unknown]
  - Diarrhoea [Recovering/Resolving]
